FAERS Safety Report 11011286 (Version 6)
Quarter: 2015Q3

REPORT INFORMATION
  Report Type: Report from Study
  Country: US (occurrence: US)
  Receive Date: 20150410
  Receipt Date: 20150910
  Transmission Date: 20151125
  Serious: Yes (Hospitalization, Other)
  Sender: FDA-Public Use
  Company Number: US-ACTELION-A-NJ2015-113835

PATIENT
  Age: 45 Year
  Sex: Female

DRUGS (7)
  1. COUMADIN [Concomitant]
     Active Substance: WARFARIN SODIUM
  2. VELETRI [Suspect]
     Active Substance: EPOPROSTENOL
     Dosage: 15 NG/KG, PER MIN
     Route: 042
     Dates: start: 20130917
  3. TRACLEER [Suspect]
     Active Substance: BOSENTAN
     Indication: PULMONARY ARTERIAL HYPERTENSION
     Dosage: 125 MG, BID
     Route: 048
     Dates: start: 20131120
  4. VELETRI [Suspect]
     Active Substance: EPOPROSTENOL
     Dosage: 0.5 NG/KG, PER MIN
     Route: 042
  5. VELETRI [Suspect]
     Active Substance: EPOPROSTENOL
     Dosage: 14 NG/KG, PER MIN
     Route: 042
  6. VELETRI [Suspect]
     Active Substance: EPOPROSTENOL
     Dosage: 1 NG/KG, PER MIN
     Route: 042
  7. VELETRI [Suspect]
     Active Substance: EPOPROSTENOL
     Indication: PULMONARY ARTERIAL HYPERTENSION
     Dosage: 14.5 NG/KG, PER MIN
     Route: 042

REACTIONS (17)
  - Cardiac operation [Unknown]
  - Influenza like illness [Unknown]
  - Pain [Unknown]
  - Chills [Unknown]
  - Vomiting [Unknown]
  - Chest discomfort [Unknown]
  - Fatigue [Unknown]
  - Dyspnoea [Unknown]
  - Cardiac disorder [Unknown]
  - Condition aggravated [Unknown]
  - Pain in jaw [Unknown]
  - Peripheral swelling [Unknown]
  - Anxiety [Unknown]
  - Heart rate increased [Unknown]
  - Pulmonary arterial hypertension [Unknown]
  - Cold sweat [Unknown]
  - Headache [Unknown]

NARRATIVE: CASE EVENT DATE: 20150217
